FAERS Safety Report 25596597 (Version 1)
Quarter: 2025Q3

REPORT INFORMATION
  Report Type: Spontaneous
  Country: JP (occurrence: JP)
  Receive Date: 20250723
  Receipt Date: 20250723
  Transmission Date: 20251021
  Serious: Yes (Hospitalization)
  Sender: PFIZER
  Company Number: JP-PFIZER INC-PV202500085031

PATIENT
  Age: 75 Year
  Sex: Female
  Weight: 52 kg

DRUGS (9)
  1. METHOTREXATE SODIUM [Suspect]
     Active Substance: METHOTREXATE SODIUM
     Indication: Rheumatoid arthritis
     Dosage: 6 MG, DAILY
     Route: 048
     Dates: start: 20040401, end: 20240712
  2. ETANERCEPT [Suspect]
     Active Substance: ETANERCEPT
     Indication: Rheumatoid arthritis
     Dosage: 50 MG, DAILY
     Route: 042
     Dates: start: 20241122, end: 20241122
  3. AZULFIDINE EN-TABS [Concomitant]
     Active Substance: SULFASALAZINE
     Dates: start: 2023
  4. ALENDRONATE SODIUM [Concomitant]
     Active Substance: ALENDRONATE SODIUM
  5. ELDECALCITOL SAWAI [Concomitant]
  6. VONOPRAZAN FUMARATE [Concomitant]
     Active Substance: VONOPRAZAN FUMARATE
  7. IGURATIMOD [Concomitant]
     Active Substance: IGURATIMOD
  8. INFLIXIMAB [Concomitant]
     Active Substance: INFLIXIMAB
     Dates: start: 20060713
  9. INFLIXIMAB [Concomitant]
     Active Substance: INFLIXIMAB
     Dates: start: 201001

REACTIONS (5)
  - Lymphoma [Recovering/Resolving]
  - Lymphoproliferative disorder [Unknown]
  - Adrenal mass [Recovering/Resolving]
  - Tendon rupture [Unknown]
  - Joint space narrowing [Unknown]

NARRATIVE: CASE EVENT DATE: 20060601
